FAERS Safety Report 7799403-7 (Version None)
Quarter: 2011Q4

REPORT INFORMATION
  Report Type: 
  Country: None (occurrence: None)
  Receive Date: 20111006
  Receipt Date: 20110927
  Transmission Date: 20120403
  Serious: Yes (Hospitalization)
  Sender: FDA-Public Use
  Company Number: US-US-EMD SERONO, INC.-7086317

PATIENT
  Sex: Female
  Weight: 78 kg

DRUGS (6)
  1. REBIF [Suspect]
     Indication: PRODUCT USED FOR UNKNOWN INDICATION
     Route: 058
  2. LYRICA [Concomitant]
  3. TYLENOL-500 [Concomitant]
  4. METFORMIN HCL [Concomitant]
  5. PROTONIX [Concomitant]
  6. MIRAPEX [Concomitant]

REACTIONS (1)
  - BLOOD POTASSIUM DECREASED [None]
